FAERS Safety Report 7984025-5 (Version None)
Quarter: 2011Q4

REPORT INFORMATION
  Report Type: 
  Country: None (occurrence: None)
  Receive Date: 20111216
  Receipt Date: 20111209
  Transmission Date: 20120403
  Serious: Yes (Other)
  Sender: FDA-Public Use
  Company Number: DE-PFIZER INC-2011298106

PATIENT
  Age: 46 Year
  Sex: Female

DRUGS (6)
  1. CLINDAMYCIN HCL [Suspect]
     Dosage: 300 MG, 2X/DAY
  2. CLINDAMYCIN HCL [Suspect]
     Indication: ENDOCARDITIS PROPHYLAXIS
     Dosage: 300 MG, 3X/DAY
     Dates: start: 20111116
  3. DILZEM [Concomitant]
     Dosage: 30 MG, 1X/DAY
  4. METOPROLOL SUCCINATE [Concomitant]
     Dosage: UNK
  5. AMLODIPINE [Concomitant]
     Dosage: 2.5 MG, UNK
  6. SANDIMMUNE [Concomitant]

REACTIONS (3)
  - GASTROINTESTINAL DISORDER [None]
  - FUNGAL INFECTION [None]
  - ARRHYTHMIA [None]
